FAERS Safety Report 13873978 (Version 2)
Quarter: 2018Q4

REPORT INFORMATION
  Report Type: Spontaneous
  Country: AU (occurrence: AU)
  Receive Date: 20170816
  Receipt Date: 20181209
  Transmission Date: 20190204
  Serious: Yes (Life-Threatening, Hospitalization, Other)
  Sender: FDA-Public Use
  Company Number: AU-BRISTOL-MYERS SQUIBB COMPANY-BMS-2017-071642

PATIENT
  Age: 72 Year
  Sex: Male

DRUGS (3)
  1. PEMBROLIZUMAB. [Suspect]
     Active Substance: PEMBROLIZUMAB
     Indication: NEUROENDOCRINE CARCINOMA METASTATIC
     Dosage: 150 MG, UNK
     Route: 065
  2. CARBOPLATIN. [Concomitant]
     Active Substance: CARBOPLATIN
     Indication: NEUROENDOCRINE CARCINOMA METASTATIC
     Route: 065
  3. ETOPOSIDE PHOSPHATE [Suspect]
     Active Substance: ETOPOSIDE PHOSPHATE
     Indication: NEUROENDOCRINE CARCINOMA METASTATIC
     Dosage: N/A
     Route: 065

REACTIONS (7)
  - Metastases to bone [Unknown]
  - Metastases to central nervous system [Unknown]
  - Nephropathy toxic [Unknown]
  - Blood lactate dehydrogenase increased [Unknown]
  - Thrombocytopenia [Unknown]
  - Confusional state [Recovered/Resolved]
  - Anaemia [Unknown]
